FAERS Safety Report 13697393 (Version 1)
Quarter: 2017Q2

REPORT INFORMATION
  Report Type: Spontaneous
  Country: US (occurrence: US)
  Receive Date: 20170628
  Receipt Date: 20170628
  Transmission Date: 20170830
  Serious: No
  Sender: FDA-Public Use
  Company Number: None

PATIENT
  Age: 78 Year
  Sex: Female
  Weight: 72.64 kg

DRUGS (7)
  1. PERFECT BIOTICS [Concomitant]
  2. BIOTIN [Concomitant]
     Active Substance: BIOTIN
  3. VITAMIN D [Concomitant]
     Active Substance: CHOLECALCIFEROL
  4. BOTOX [Suspect]
     Active Substance: ONABOTULINUMTOXINA
     Indication: HYPERTONIC BLADDER
     Dosage: 200 UNITS INSTEAD OF 100 UNITS INJECTED BY DR INJECTION
     Dates: start: 20170317, end: 20170317
  5. SYNTHROID [Concomitant]
     Active Substance: LEVOTHYROXINE SODIUM
  6. FIBER CHOICE [Concomitant]
  7. D2 [Concomitant]

REACTIONS (2)
  - Dysuria [None]
  - Bladder prolapse [None]

NARRATIVE: CASE EVENT DATE: 20170317
